FAERS Safety Report 9752054 (Version 1)
Quarter: 2013Q4

REPORT INFORMATION
  Report Type: Spontaneous
  Country: US (occurrence: US)
  Receive Date: 20131213
  Receipt Date: 20131213
  Transmission Date: 20140711
  Serious: No
  Sender: FDA-Public Use
  Company Number: US-009507513-1312USA005294

PATIENT
  Sex: Female
  Weight: 59.86 kg

DRUGS (1)
  1. NEXPLANON [Suspect]
     Indication: CONTRACEPTION
     Dosage: 1 ROD
     Route: 059
     Dates: start: 20131021, end: 20131104

REACTIONS (3)
  - Implant site pain [Recovered/Resolved]
  - Device dislocation [Recovered/Resolved]
  - Device deployment issue [Recovered/Resolved]
